FAERS Safety Report 24650400 (Version 1)
Quarter: 2024Q4

REPORT INFORMATION
  Report Type: Report from Study
  Country: GB (occurrence: GB)
  Receive Date: 20241122
  Receipt Date: 20241122
  Transmission Date: 20250115
  Serious: Yes (Death, Hospitalization, Other)
  Sender: ABBVIE
  Company Number: GB-ABBVIE-6010306

PATIENT
  Age: 64 Year
  Sex: Male
  Weight: 120 kg

DRUGS (1)
  1. SKYRIZI [Suspect]
     Active Substance: RISANKIZUMAB-RZAA
     Indication: Psoriasis
     Route: 058
     Dates: start: 20200206

REACTIONS (17)
  - Death [Fatal]
  - Hyperhidrosis [Unknown]
  - Dental prosthesis removal [Unknown]
  - Feeding disorder [Unknown]
  - Dyspnoea [Not Recovered/Not Resolved]
  - Peripheral vascular disorder [Unknown]
  - Chest pain [Not Recovered/Not Resolved]
  - Peripheral coldness [Unknown]
  - Hypoperfusion [Unknown]
  - Hypotension [Unknown]
  - Cardiac dysfunction [Unknown]
  - Crepitations [Unknown]
  - Disorientation [Unknown]
  - Physical examination abnormal [Unknown]
  - Respiratory gas exchange disorder [Unknown]
  - Unevaluable event [Unknown]
  - Pulmonary oedema [Unknown]

NARRATIVE: CASE EVENT DATE: 20240101
